FAERS Safety Report 17690823 (Version 1)
Quarter: 2020Q2

REPORT INFORMATION
  Report Type: Spontaneous
  Country: FR (occurrence: FR)
  Receive Date: 20200422
  Receipt Date: 20200422
  Transmission Date: 20200714
  Serious: Yes (Hospitalization)
  Sender: FDA-Public Use
  Company Number: FR-ABBVIE-20K-056-3371713-00

PATIENT
  Age: 59 Year
  Sex: Female
  Weight: 58 kg

DRUGS (3)
  1. CERTICAN [Interacting]
     Active Substance: EVEROLIMUS
     Indication: LUNG TRANSPLANT
     Dosage: CERTICAN 1 MG, COMPRIM?
     Route: 048
     Dates: end: 20200330
  2. KALETRA [Suspect]
     Active Substance: LOPINAVIR\RITONAVIR
     Indication: CORONAVIRUS INFECTION
     Dosage: KALETRA 200 MG/50 MG, COMPRIM? PELLICUL?
     Route: 048
     Dates: start: 20200328, end: 20200401
  3. ADVAGRAF [Interacting]
     Active Substance: TACROLIMUS
     Indication: LUNG TRANSPLANT
     Dosage: ADVAGRAF 1 MG, G?LULE ? LIB?RATION PROLONG?E
     Route: 048
     Dates: end: 20200330

REACTIONS (5)
  - Inhibitory drug interaction [Recovered/Resolved]
  - Headache [Recovered/Resolved]
  - Vomiting [Recovered/Resolved]
  - Nausea [Recovered/Resolved]
  - Immunosuppressant drug level increased [Recovered/Resolved]

NARRATIVE: CASE EVENT DATE: 20200328
